FAERS Safety Report 4289441-3 (Version None)
Quarter: 2004Q1

REPORT INFORMATION
  Report Type: 
  Country: None (occurrence: None)
  Receive Date: 20040206
  Receipt Date: 20040206
  Transmission Date: 20041129
  Serious: Yes (Hospitalization)
  Sender: FDA-Public Use
  Company Number: None

PATIENT
  Sex: Female

DRUGS (18)
  1. CRESTOR [Suspect]
     Indication: HYPERLIPIDAEMIA
     Dosage: 10 MG DAILY ORAL
     Route: 048
     Dates: start: 20030826, end: 20040201
  2. ZETIA [Suspect]
     Indication: HYPERLIPIDAEMIA
     Dosage: 10 MG DAILY ORAL
     Route: 048
     Dates: start: 20030801, end: 20040119
  3. MONOPRIL [Concomitant]
  4. VITAMIN C [Concomitant]
  5. COREG [Concomitant]
  6. MULTI-VITAMIN [Concomitant]
  7. FISH OIL [Concomitant]
  8. COLACE [Concomitant]
  9. IRON [Concomitant]
  10. NEXIUM [Concomitant]
  11. CALCIUM [Concomitant]
  12. LISPRO INSULIN 75/25 [Concomitant]
  13. MAGNESIUM [Concomitant]
  14. DIGOXIN [Concomitant]
  15. ZINC SULFATE [Concomitant]
  16. SPIRONOLACTONE [Concomitant]
  17. IMDUR [Concomitant]
  18. LASIX [Concomitant]

REACTIONS (1)
  - CHEST PAIN [None]
